FAERS Safety Report 9836148 (Version 2)
Quarter: 2014Q1

REPORT INFORMATION
  Report Type: Report from Study
  Country: GB (occurrence: GB)
  Receive Date: 20140123
  Receipt Date: 20140319
  Transmission Date: 20141002
  Serious: Yes (Life-Threatening, Hospitalization)
  Sender: FDA-Public Use
  Company Number: GB-ROCHE-1336376

PATIENT
  Age: 79 Year
  Sex: Male

DRUGS (4)
  1. RANIBIZUMAB [Suspect]
     Indication: AGE-RELATED MACULAR DEGENERATION
     Route: 050
     Dates: start: 20090530
  2. RANIBIZUMAB [Suspect]
     Route: 050
     Dates: start: 20110201
  3. ASPIRIN [Concomitant]
     Route: 065
     Dates: start: 20120515
  4. ASPIRIN [Concomitant]
     Route: 065
     Dates: start: 20131202, end: 20131203

REACTIONS (2)
  - Ischaemic stroke [Recovered/Resolved]
  - Thrombosis [Recovered/Resolved]
